FAERS Safety Report 7451151-9 (Version None)
Quarter: 2011Q2

REPORT INFORMATION
  Report Type: 
  Country: None (occurrence: None)
  Receive Date: 20110429
  Receipt Date: 20110429
  Transmission Date: 20111010
  Serious: No
  Sender: FDA-Public Use
  Company Number: None

PATIENT
  Age: 72 Year
  Sex: Female
  Weight: 68.4932 kg

DRUGS (1)
  1. SIMVASTATIN [Suspect]
     Indication: BLOOD CHOLESTEROL
     Dosage: 20 MG 1/DAY PO
     Route: 048
     Dates: start: 20100909, end: 20110423

REACTIONS (8)
  - GAIT DISTURBANCE [None]
  - WEIGHT DECREASED [None]
  - MENTAL DISORDER [None]
  - DECREASED APPETITE [None]
  - FEELING ABNORMAL [None]
  - ABDOMINAL DISCOMFORT [None]
  - MUSCULAR WEAKNESS [None]
  - FATIGUE [None]
